FAERS Safety Report 12616575 (Version 1)
Quarter: 2016Q3

REPORT INFORMATION
  Report Type: Spontaneous
  Country: US (occurrence: US)
  Receive Date: 20160802
  Receipt Date: 20160802
  Transmission Date: 20161109
  Serious: No
  Sender: FDA-Public Use
  Company Number: US-IMPAX LABORATORIES, INC-2015AMD00180

PATIENT
  Age: 17 Year
  Sex: Female
  Weight: 53.52 kg

DRUGS (1)
  1. ALBENDAZOLE [Suspect]
     Active Substance: ALBENDAZOLE
     Indication: CESTODE INFECTION
     Dosage: 400 MG, 1X/DAY
     Route: 048
     Dates: start: 20150805, end: 20150806

REACTIONS (1)
  - Drug ineffective [Recovering/Resolving]

NARRATIVE: CASE EVENT DATE: 201508
